FAERS Safety Report 12622976 (Version 1)
Quarter: 2016Q3

REPORT INFORMATION
  Report Type: Spontaneous
  Country: EC (occurrence: EC)
  Receive Date: 20160804
  Receipt Date: 20160804
  Transmission Date: 20161109
  Serious: Yes (Hospitalization)
  Sender: FDA-Public Use
  Company Number: EC-SA-2016SA137190

PATIENT
  Age: 36 Year
  Sex: Female

DRUGS (1)
  1. INSULIN GLARGINE [Suspect]
     Active Substance: INSULIN GLARGINE
     Indication: HYPERGLYCAEMIA
     Dosage: 0.25 U/KG
     Route: 065

REACTIONS (10)
  - Insulin resistance syndrome [Recovering/Resolving]
  - Glycosylated haemoglobin increased [Recovering/Resolving]
  - Ketonuria [Recovering/Resolving]
  - Cachexia [Recovering/Resolving]
  - Dehydration [Recovering/Resolving]
  - Fructosamine increased [Recovering/Resolving]
  - Blood glucose increased [Recovering/Resolving]
  - Incorrect dose administered [Unknown]
  - Skin lesion [Recovered/Resolved]
  - Acanthosis nigricans [Recovered/Resolved]
